FAERS Safety Report 6434101-3 (Version None)
Quarter: 2009Q4

REPORT INFORMATION
  Report Type: 
  Country: None (occurrence: None)
  Receive Date: 20091110
  Receipt Date: 20090213
  Transmission Date: 20100525
  Serious: No
  Sender: FDA-Public Use
  Company Number: US-ASTRAZENECA-2009SE04889

PATIENT
  Age: 76 Year
  Sex: Female

DRUGS (5)
  1. PRILOSEC OTC [Suspect]
     Dosage: 1 TABLET, 1 /DAY FOR 6 DAYS
     Route: 048
     Dates: start: 20090123, end: 20090131
  2. SUBSTITUTE FOR LIPITOR [Concomitant]
     Dosage: UNKNOWN
  3. ASPIRIN [Concomitant]
     Dosage: UNKNOWN
  4. ATENOLOL [Concomitant]
     Dosage: UNKNOWN
  5. CORTISONE [Concomitant]
     Dosage: UNKNOWN

REACTIONS (3)
  - ARRHYTHMIA [None]
  - INAPPROPRIATE SCHEDULE OF DRUG ADMINISTRATION [None]
  - PAIN [None]
